FAERS Safety Report 23434133 (Version 1)
Quarter: 2024Q1

REPORT INFORMATION
  Report Type: Spontaneous
  Country: DE (occurrence: DE)
  Receive Date: 20240123
  Receipt Date: 20240123
  Transmission Date: 20240409
  Serious: Yes (Other)
  Sender: FDA-Public Use
  Company Number: DE-HAMELN-2023HAM001558

PATIENT
  Age: 31 Year
  Sex: Male

DRUGS (4)
  1. PANTOPRAZOLE [Suspect]
     Active Substance: PANTOPRAZOLE
     Indication: Product used for unknown indication
     Dosage: UNK
     Route: 065
  2. KETAMINE [Suspect]
     Active Substance: KETAMINE
     Indication: Product used for unknown indication
     Dosage: UNK
     Route: 065
  3. AMPHETAMINE [Suspect]
     Active Substance: AMPHETAMINE
     Indication: Product used for unknown indication
     Dosage: UNK
     Route: 065
  4. CANNABIS SATIVA SUBSP. INDICA TOP [Suspect]
     Active Substance: CANNABIS SATIVA SUBSP. INDICA TOP
     Indication: Product used for unknown indication
     Dosage: UNK
     Route: 065

REACTIONS (16)
  - Drug abuse [Unknown]
  - Pupillary reflex impaired [Unknown]
  - Thinking abnormal [Unknown]
  - Gait disturbance [Unknown]
  - Dysarthria [Unknown]
  - Mood altered [Unknown]
  - Mydriasis [Unknown]
  - Disturbance in attention [Unknown]
  - Irritability [Unknown]
  - Conjunctival hyperaemia [Unknown]
  - Blepharospasm [Unknown]
  - Aggression [Unknown]
  - Tension [Unknown]
  - Hyperhidrosis [Unknown]
  - Vertigo [Unknown]
  - Dizziness [Unknown]
